FAERS Safety Report 6391616-4 (Version None)
Quarter: 2009Q4

REPORT INFORMATION
  Report Type: 
  Country: None (occurrence: None)
  Receive Date: 20091007
  Receipt Date: 20090616
  Transmission Date: 20100525
  Serious: No
  Sender: FDA-Public Use
  Company Number: A0791779A

PATIENT
  Age: 66 Year
  Sex: Female

DRUGS (4)
  1. ADVAIR DISKUS 100/50 [Suspect]
     Dosage: 2PUFF AS REQUIRED
     Route: 055
     Dates: start: 20080101, end: 20090601
  2. ACIPHEX [Concomitant]
  3. DIOVAN [Concomitant]
  4. ALBUTEROL [Concomitant]

REACTIONS (1)
  - DYSPHONIA [None]
